FAERS Safety Report 20697188 (Version 7)
Quarter: 2022Q3

REPORT INFORMATION
  Report Type: Spontaneous
  Country: US (occurrence: US)
  Receive Date: 20220411
  Receipt Date: 20220715
  Transmission Date: 20221027
  Serious: Yes (Other)
  Sender: FDA-Public Use
  Company Number: US-PFIZER INC-202200506996

PATIENT
  Age: 68 Year
  Sex: Female

DRUGS (1)
  1. IBRANCE [Suspect]
     Active Substance: PALBOCICLIB
     Dosage: UNK
     Dates: start: 20220303

REACTIONS (10)
  - White blood cell count decreased [Unknown]
  - Nausea [Unknown]
  - Vomiting [Unknown]
  - Fatigue [Recovering/Resolving]
  - Epistaxis [Not Recovered/Not Resolved]
  - Condition aggravated [Not Recovered/Not Resolved]
  - White blood cell count increased [Unknown]
  - Limb injury [Not Recovered/Not Resolved]
  - Constipation [Unknown]
  - Alopecia [Unknown]

NARRATIVE: CASE EVENT DATE: 20220101
